FAERS Safety Report 17803615 (Version 1)
Quarter: 2020Q2

REPORT INFORMATION
  Report Type: Spontaneous
  Country: FI (occurrence: FI)
  Receive Date: 20200519
  Receipt Date: 20200519
  Transmission Date: 20200714
  Serious: Yes (Other)
  Sender: FDA-Public Use
  Company Number: NVSC2020FI133443

PATIENT
  Sex: Male

DRUGS (2)
  1. ENTRESTO [Suspect]
     Active Substance: SACUBITRIL\VALSARTAN
     Dosage: 50 MG, QD (IN THE EVENING)
     Route: 065
     Dates: start: 202002
  2. ENTRESTO [Suspect]
     Active Substance: SACUBITRIL\VALSARTAN
     Indication: PRODUCT USED FOR UNKNOWN INDICATION
     Dosage: 100 MG
     Route: 065
     Dates: start: 201912, end: 202002

REACTIONS (6)
  - Underdose [Unknown]
  - Blood pressure decreased [Unknown]
  - Ejection fraction decreased [Unknown]
  - Blood potassium increased [Unknown]
  - Mitral valve incompetence [Unknown]
  - Delusion [Unknown]

NARRATIVE: CASE EVENT DATE: 202002
